FAERS Safety Report 9139761 (Version 1)
Quarter: 2013Q1

REPORT INFORMATION
  Report Type: Spontaneous
  Country: US (occurrence: US)
  Receive Date: 20130305
  Receipt Date: 20130305
  Transmission Date: 20140127
  Serious: No
  Sender: FDA-Public Use
  Company Number: US-ENDO PHARMACEUTICALS INC.-SPLN20110075

PATIENT
  Age: 4 Year
  Sex: Male
  Weight: 20.9 kg

DRUGS (3)
  1. SUPPRELIN LA [Suspect]
     Indication: PRECOCIOUS PUBERTY
     Route: 058
     Dates: start: 201104, end: 201108
  2. KEPPRA [Suspect]
     Indication: CONVULSION
     Dosage: UNKNOWN
     Route: 065
  3. TRILEPTAL [Suspect]
     Indication: CONVULSION
     Dosage: UNKNOWN
     Route: 065

REACTIONS (3)
  - Drug interaction [Unknown]
  - Aggression [Unknown]
  - Drug ineffective [Unknown]
